FAERS Safety Report 18345279 (Version 1)
Quarter: 2020Q4

REPORT INFORMATION
  Report Type: Other
  Country: JP (occurrence: JP)
  Receive Date: 20201005
  Receipt Date: 20201005
  Transmission Date: 20210114
  Serious: Yes (Other)
  Sender: FDA-Public Use
  Company Number: JP-ROCHE-2687557

PATIENT

DRUGS (2)
  1. RITUXIMAB. [Suspect]
     Active Substance: RITUXIMAB
     Indication: B-CELL LYMPHOMA
     Dosage: ON DAY 1
     Route: 042
  2. BENDAMUSTINE [Suspect]
     Active Substance: BENDAMUSTINE
     Indication: B-CELL LYMPHOMA
     Dosage: DAY 1 AND 2 (OR 2 AND 3)
     Route: 065

REACTIONS (5)
  - Neutropenia [Unknown]
  - Hepatic enzyme increased [Recovered/Resolved]
  - Gastric cancer [Unknown]
  - Lymphopenia [Unknown]
  - Cytopenia [Unknown]
